FAERS Safety Report 8774120 (Version 1)
Quarter: 2012Q4

REPORT INFORMATION
  Report Type: 
  Country: JP (occurrence: JP)
  Receive Date: 20120907
  Receipt Date: 20120907
  Transmission Date: 20130627
  Serious: Yes (Other)
  Sender: FDA-Public Use
  Company Number: JP-ASTRAZENECA-2012SE69501

PATIENT
  Age: 23 Year
  Sex: Female

DRUGS (2)
  1. MEROPEN [Suspect]
     Route: 042
     Dates: end: 20090819
  2. MEROPEN [Suspect]
     Route: 042

REACTIONS (3)
  - Exposure during pregnancy [Unknown]
  - Premature labour [Unknown]
  - Inflammation [Unknown]
